FAERS Safety Report 8789497 (Version 1)
Quarter: 2012Q4

REPORT INFORMATION
  Report Type: Spontaneous
  Country: US (occurrence: None)
  Receive Date: 20120910
  Receipt Date: 20120910
  Transmission Date: 20130627
  Serious: Yes (Life-Threatening, Hospitalization, Disabling)
  Sender: FDA-Public Use
  Company Number: None

PATIENT
  Age: 57 Year
  Sex: Female
  Weight: 82.56 kg

DRUGS (2)
  1. HALDOL [Suspect]
     Dosage: 10 MG. DAILY ONCE po
     Route: 048
     Dates: start: 20120824, end: 20120829
  2. ABILIFY [Suspect]

REACTIONS (2)
  - Eye disorder [None]
  - Ill-defined disorder [None]
